FAERS Safety Report 7682350-9 (Version None)
Quarter: 2011Q3

REPORT INFORMATION
  Report Type: 
  Country: None (occurrence: None)
  Receive Date: 20110805
  Receipt Date: 20110725
  Transmission Date: 20111222
  Serious: Yes (Hospitalization)
  Sender: FDA-Public Use
  Company Number: 2011SP034873

PATIENT
  Age: 19 Year
  Sex: Female
  Weight: 56 kg

DRUGS (4)
  1. ETONOGESTREL (IMPLANT TYPE UNKNOWN) (ETONOGESTREL /01502301/) [Suspect]
     Indication: CONTRACEPTION
     Dosage: 68 MG, SC
     Route: 058
     Dates: start: 20110224
  2. CABARMAZEPINE [Concomitant]
  3. CLOBAZAM [Concomitant]
  4. LEVETIRACETAM [Concomitant]

REACTIONS (3)
  - CONVULSION [None]
  - CONDITION AGGRAVATED [None]
  - INJURY [None]
